FAERS Safety Report 8449199-0 (Version None)
Quarter: 2012Q2

REPORT INFORMATION
  Report Type: 
  Country: None (occurrence: None)
  Receive Date: 20120619
  Receipt Date: 20111101
  Transmission Date: 20120825
  Serious: Yes (Other)
  Sender: FDA-Public Use
  Company Number: US-TEVA-2011002380

PATIENT
  Sex: Female

DRUGS (2)
  1. ACTIQ [Suspect]
     Route: 002
     Dates: start: 20020101
  2. ACTIQ [Suspect]
     Route: 002
     Dates: start: 20020101

REACTIONS (2)
  - DENTAL CARIES [None]
  - SEPSIS [None]
